FAERS Safety Report 7718174-3 (Version None)
Quarter: 2011Q3

REPORT INFORMATION
  Report Type: 
  Country: None (occurrence: None)
  Receive Date: 20110830
  Receipt Date: 20110824
  Transmission Date: 20111222
  Serious: Yes (Death, Other)
  Sender: FDA-Public Use
  Company Number: KR-ROCHE-731270

PATIENT
  Age: 58 Year
  Sex: Female

DRUGS (7)
  1. PREDNISOLONE [Suspect]
     Dosage: DRUG STOPPED 30 DAYS AFTER LIVER TRANSPLANT.
     Route: 048
  2. CYCLOSPORINE [Suspect]
     Dosage: DOSE 50 NG/ML
     Route: 065
  3. MYCOPHENOLATE MOFETIL [Suspect]
     Route: 065
  4. ANTI-IL-2-MONOCLONAL ANTIBODIES [Suspect]
     Route: 065
  5. ANTI-IL-2-MONOCLONAL ANTIBODIES [Suspect]
     Dosage: REDUCED LEVEL.
     Route: 065
  6. TACROLIMUS [Suspect]
     Dosage: DOSE: 12 NG/ML
     Route: 065
  7. TACROLIMUS [Suspect]
     Dosage: DOSE: 6.2 NG/ML, DOSE REDUCED AFTER 25 DAYS OF LIVER TRANSPLANT AND SWITCHED TO CYCLOSPORINE.
     Route: 065

REACTIONS (3)
  - LEUKOPENIA [None]
  - SEPSIS [None]
  - ACUTE GRAFT VERSUS HOST DISEASE [None]
